FAERS Safety Report 7011145-4 (Version None)
Quarter: 2010Q3

REPORT INFORMATION
  Report Type: 
  Country: None (occurrence: None)
  Receive Date: 20100923
  Receipt Date: 20090209
  Transmission Date: 20110219
  Serious: Yes (Other)
  Sender: FDA-Public Use
  Company Number: US-WYE-H07140308

PATIENT
  Sex: Female

DRUGS (10)
  1. PREMARIN [Suspect]
     Indication: OESTROGEN THERAPY
     Dosage: PRN
     Route: 067
     Dates: end: 20081201
  2. METOPROLOL SUCCINATE [Concomitant]
     Dosage: DAILY
     Route: 048
  3. FOLIC ACID [Concomitant]
     Dosage: DAILY
     Route: 048
  4. IMDUR [Concomitant]
     Route: 048
  5. ACETYLSALICYLIC ACID [Concomitant]
     Route: 048
  6. VITAMIN B3 [Concomitant]
     Dosage: DAILY
     Route: 048
  7. ZETIA [Concomitant]
     Route: 048
  8. MULTI-VITAMINS [Concomitant]
     Dosage: DAILY
     Route: 048
  9. WARFARIN [Concomitant]
     Dosage: DAILY
     Route: 048
  10. CALCIUM [Concomitant]
     Dosage: DAILY
     Route: 048

REACTIONS (1)
  - RETINAL VASCULAR THROMBOSIS [None]
